FAERS Safety Report 14279967 (Version 1)
Quarter: 2017Q4

REPORT INFORMATION
  Report Type: Spontaneous
  Country: US (occurrence: US)
  Receive Date: 20171212
  Receipt Date: 20171212
  Transmission Date: 20180321
  Serious: Yes (Death)
  Sender: FDA-Public Use
  Company Number: US-PERRIGO-17US030932

PATIENT
  Age: 42 Year
  Sex: Female

DRUGS (7)
  1. MIRTAZAPINE. [Suspect]
     Active Substance: MIRTAZAPINE
     Indication: INTENTIONAL PRODUCT MISUSE
     Dosage: UNK
     Route: 048
  2. ACETAMINOPHEN. [Suspect]
     Active Substance: ACETAMINOPHEN
     Indication: INTENTIONAL PRODUCT MISUSE
     Dosage: UNK
     Route: 048
  3. SERTRALINE [Suspect]
     Active Substance: SERTRALINE HYDROCHLORIDE
     Indication: INTENTIONAL PRODUCT MISUSE
     Dosage: UNK
     Route: 048
  4. ACETAMINOPHEN AND DIPHENHYDRAMINE HYDROCHLORIDE [Suspect]
     Active Substance: ACETAMINOPHEN\DIPHENHYDRAMINE HYDROCHLORIDE
     Indication: INTENTIONAL PRODUCT MISUSE
     Dosage: UNK
     Route: 048
  5. ACETAMINOPHEN W/HYDROCODONE [Suspect]
     Active Substance: ACETAMINOPHEN\HYDROCODONE
     Indication: INTENTIONAL PRODUCT MISUSE
     Dosage: UNK
     Route: 048
  6. PANTOPRAZOLE [Suspect]
     Active Substance: PANTOPRAZOLE
     Indication: INTENTIONAL PRODUCT MISUSE
     Dosage: UNK
     Route: 048
  7. CLONAZEPAM. [Suspect]
     Active Substance: CLONAZEPAM
     Indication: INTENTIONAL PRODUCT MISUSE
     Dosage: UNK
     Route: 048

REACTIONS (1)
  - Death [Fatal]
